FAERS Safety Report 18152512 (Version 2)
Quarter: 2020Q3

REPORT INFORMATION
  Report Type: Not Available
  Country: US (occurrence: US)
  Receive Date: 20200814
  Receipt Date: 20200903
  Transmission Date: 20201103
  Serious: Yes (Other)
  Sender: FDA-Public Use
  Company Number: US-NEUROCRINE BIOSCIENCES INC.-2020NBI02798

PATIENT
  Age: 49 Year
  Sex: Female

DRUGS (1)
  1. INGREZZA [Suspect]
     Active Substance: VALBENAZINE
     Indication: TARDIVE DYSKINESIA
     Route: 048
     Dates: start: 20200210

REACTIONS (3)
  - Eye haemorrhage [Unknown]
  - Incoherent [Unknown]
  - Bronchitis [Unknown]

NARRATIVE: CASE EVENT DATE: 202008
